FAERS Safety Report 9565356 (Version 2)
Quarter: 2014Q1

REPORT INFORMATION
  Report Type: Report from Study
  Country: US (occurrence: US)
  Receive Date: 20130930
  Receipt Date: 20140110
  Transmission Date: 20141002
  Serious: Yes (Other)
  Sender: FDA-Public Use
  Company Number: US-MYLANLABS-2013S1021072

PATIENT
  Age: 22 Year
  Sex: Female

DRUGS (3)
  1. AMNESTEEM CAPSULES [Suspect]
     Dates: start: 20130627, end: 20130916
  2. AMNESTEEM CAPSULES [Suspect]
     Dates: start: 201308, end: 20130916
  3. INTRAVAGINAL CONTRACEPTIVES [Concomitant]

REACTIONS (1)
  - Exposure during pregnancy [Not Recovered/Not Resolved]
